FAERS Safety Report 7610526-5 (Version None)
Quarter: 2011Q3

REPORT INFORMATION
  Report Type: 
  Country: None (occurrence: None)
  Receive Date: 20110715
  Receipt Date: 20110706
  Transmission Date: 20111222
  Serious: Yes (Death)
  Sender: FDA-Public Use
  Company Number: US-ASTELLAS-2011US002564

PATIENT
  Age: 65 Year
  Sex: Female

DRUGS (2)
  1. ERLOTINIB HYDROCHLORIDE [Suspect]
     Indication: NON-SMALL CELL LUNG CANCER
     Dosage: 150 MG, UID/QD
     Route: 048
     Dates: start: 20100701
  2. FASLODEX [Suspect]
     Indication: NON-SMALL CELL LUNG CANCER
     Dosage: 500 MG, MONTHLY
     Route: 030
     Dates: start: 20100213

REACTIONS (2)
  - PNEUMONIA [None]
  - COMA [None]
